FAERS Safety Report 5944808-X (Version None)
Quarter: 2008Q4

REPORT INFORMATION
  Report Type: 
  Country: None (occurrence: None)
  Receive Date: 20081107
  Receipt Date: 20081106
  Transmission Date: 20090506
  Serious: Yes (Life-Threatening)
  Sender: FDA-Public Use
  Company Number: JP-ASTRAZENECA-2008AP05673

PATIENT
  Age: 21342 Day
  Sex: Female
  Weight: 53.5 kg

DRUGS (1)
  1. NOLVADEX [Suspect]
     Indication: BREAST CANCER STAGE III
     Route: 048
     Dates: start: 20040116, end: 20080717

REACTIONS (1)
  - INTRACRANIAL VENOUS SINUS THROMBOSIS [None]
